FAERS Safety Report 4428777-X (Version None)
Quarter: 2004Q3

REPORT INFORMATION
  Report Type: 
  Country: None (occurrence: None)
  Receive Date: 20040818
  Receipt Date: 20040610
  Transmission Date: 20050211
  Serious: No
  Sender: FDA-Public Use
  Company Number: US-BRISTOL-MYERS SQUIBB COMPANY-12610895

PATIENT
  Sex: Female
  Weight: 92 kg

DRUGS (17)
  1. TEQUIN [Suspect]
     Route: 042
     Dates: start: 20040610, end: 20040610
  2. IPRATROPIUM BROMIDE [Concomitant]
     Route: 055
  3. ALBUTEROL [Concomitant]
     Route: 055
  4. PREDNISONE [Concomitant]
     Route: 048
  5. HEPARIN [Concomitant]
     Dosage: DOSAGE FORM = UNITS
     Route: 058
  6. ISOSORBIDE [Concomitant]
     Route: 048
  7. VIOXX [Concomitant]
     Route: 048
  8. MULTI-VITAMIN [Concomitant]
  9. NEURONTIN [Concomitant]
  10. ASPIRIN [Concomitant]
  11. NITRO OINTMENT [Concomitant]
     Dosage: DOSAGE FORM = INCH
     Route: 061
  12. COREG [Concomitant]
     Route: 048
  13. LISINOPRIL [Concomitant]
     Route: 048
  14. FLOVENT [Concomitant]
     Route: 055
  15. LIPITOR [Concomitant]
  16. PROTONIX [Concomitant]
     Route: 048
  17. NPH INSULIN [Concomitant]
     Dosage: DOSAGE FORM = UNITS
     Route: 058

REACTIONS (1)
  - EXTRAVASATION [None]
